FAERS Safety Report 9645366 (Version 2)
Quarter: 2013Q4

REPORT INFORMATION
  Report Type: Spontaneous
  Country: BR (occurrence: BR)
  Receive Date: 20131025
  Receipt Date: 20131206
  Transmission Date: 20140711
  Serious: Yes (Other)
  Sender: FDA-Public Use
  Company Number: BR-ELI_LILLY_AND_COMPANY-BR201310004502

PATIENT
  Age: 77 Year
  Sex: Male

DRUGS (12)
  1. HUMALOG [Suspect]
     Indication: TYPE 2 DIABETES MELLITUS
     Dosage: 5 IU, EACH MORNING
     Route: 058
     Dates: start: 2010
  2. HUMALOG [Suspect]
     Dosage: 12 IU, BID
     Route: 058
     Dates: start: 2010
  3. HUMALOG [Suspect]
     Dosage: 12 IU, PRN
     Route: 058
  4. PRESSAT [Concomitant]
     Dosage: 5 MG, EACH MORNING
     Route: 065
  5. MICARDIS [Concomitant]
     Dosage: 1 DF, QD
     Route: 065
  6. ATENOLOL [Concomitant]
     Dosage: 25 MG, QD
     Route: 065
  7. OMEGA 3 [Concomitant]
     Dosage: 1 DF, QD
     Route: 065
  8. AAS [Concomitant]
     Dosage: 2 DF, QD
     Route: 065
  9. BENERVA [Concomitant]
     Dosage: 300 MG, QD
     Route: 065
  10. VYTORIN [Concomitant]
     Dosage: 1 DF, QD
     Route: 065
  11. LANTUS                             /01483501/ [Concomitant]
     Dosage: 38 IU, EACH EVENING
     Route: 005
  12. AVODART [Concomitant]
     Dosage: 5 MG, EACH EVENING
     Route: 065

REACTIONS (4)
  - Cataract [Unknown]
  - Blood glucose increased [Unknown]
  - Blood pressure decreased [Unknown]
  - Hunger [Unknown]
